FAERS Safety Report 11539659 (Version 1)
Quarter: 2015Q3

REPORT INFORMATION
  Report Type: Report from Study
  Country: BR (occurrence: BR)
  Receive Date: 20150923
  Receipt Date: 20150923
  Transmission Date: 20151125
  Serious: Yes (Other)
  Sender: FDA-Public Use
  Company Number: PHHY2015BR113663

PATIENT
  Sex: Female
  Weight: 75 kg

DRUGS (2)
  1. EXELON PATCH [Suspect]
     Active Substance: RIVASTIGMINE
     Dosage: PATCH (5 CM2)
     Route: 062
     Dates: start: 201310
  2. EXELON PATCH [Suspect]
     Active Substance: RIVASTIGMINE
     Indication: DEMENTIA ALZHEIMER^S TYPE
     Dosage: PATCH (10 CM2)
     Route: 062
     Dates: start: 201303, end: 201310

REACTIONS (1)
  - Blood pressure decreased [Recovering/Resolving]
